FAERS Safety Report 21518506 (Version 2)
Quarter: 2022Q4

REPORT INFORMATION
  Report Type: Report from Study
  Country: US (occurrence: US)
  Receive Date: 20221028
  Receipt Date: 20221229
  Transmission Date: 20230113
  Serious: Yes (Other)
  Sender: FDA-Public Use
  Company Number: US-NOVARTISPH-NVSC2022US239537

PATIENT
  Age: 66 Year
  Sex: Male

DRUGS (1)
  1. ENTRESTO [Suspect]
     Active Substance: SACUBITRIL\VALSARTAN
     Indication: Product used for unknown indication
     Dosage: 1.5 DOSAGE FORM, BID (1/2-TAB AM1-TAB PM)
     Route: 048
     Dates: start: 202006

REACTIONS (10)
  - Mitral valve incompetence [Not Recovered/Not Resolved]
  - Feeling abnormal [Unknown]
  - Migraine [Recovering/Resolving]
  - Vomiting [Recovering/Resolving]
  - Concomitant disease aggravated [Unknown]
  - Cough [Unknown]
  - Procedural pain [Unknown]
  - Dysphagia [Unknown]
  - Wrong technique in product usage process [Unknown]
  - Prescribed underdose [Unknown]

NARRATIVE: CASE EVENT DATE: 20200601
